FAERS Safety Report 6971157-3 (Version None)
Quarter: 2010Q3

REPORT INFORMATION
  Report Type: 
  Country: None (occurrence: None)
  Receive Date: 20100908
  Receipt Date: 20100827
  Transmission Date: 20110219
  Serious: Yes (Other)
  Sender: FDA-Public Use
  Company Number: US-PFIZER INC-2010108435

PATIENT
  Age: 38 Year
  Sex: Female

DRUGS (4)
  1. CHANTIX [Suspect]
     Indication: SMOKING CESSATION THERAPY
     Dosage: 0.5 MG, DAILY
     Route: 048
     Dates: start: 20100801
  2. CHANTIX [Suspect]
     Dosage: UNK
     Route: 048
     Dates: start: 20100801, end: 20100801
  3. TRAZODONE [Concomitant]
     Dosage: UNK
  4. CITALOPRAM [Concomitant]
     Dosage: UNK

REACTIONS (8)
  - ANXIETY [None]
  - DELUSION [None]
  - FEELING ABNORMAL [None]
  - HALLUCINATION [None]
  - MANIA [None]
  - PARANOIA [None]
  - PSYCHOTIC DISORDER [None]
  - SUICIDAL IDEATION [None]
